FAERS Safety Report 11836120 (Version 1)
Quarter: 2015Q4

REPORT INFORMATION
  Report Type: Spontaneous
  Country: US (occurrence: None)
  Receive Date: 20151214
  Receipt Date: 20151214
  Transmission Date: 20160305
  Serious: No
  Sender: FDA-Public Use
  Company Number: None

PATIENT
  Age: 22 Year
  Sex: Male
  Weight: 94.6 kg

DRUGS (1)
  1. IOPROMIDE [Suspect]
     Active Substance: IOPROMIDE
     Indication: COMPUTERISED TOMOGRAM
     Route: 042
     Dates: start: 20151130, end: 20151130

REACTIONS (2)
  - Anaphylactic reaction [None]
  - Angioedema [None]

NARRATIVE: CASE EVENT DATE: 20151130
